FAERS Safety Report 4622243-4 (Version None)
Quarter: 2005Q1

REPORT INFORMATION
  Report Type: 
  Country: None (occurrence: None)
  Receive Date: 20050323
  Receipt Date: 20050323
  Transmission Date: 20050727
  Serious: Yes (Other)
  Sender: FDA-Public Use
  Company Number: None

PATIENT
  Sex: Male
  Weight: 53.5244 kg

DRUGS (1)
  1. MONISTAT 1 COMBINATION PACK [Suspect]
     Indication: VAGINAL MYCOSIS
     Dosage: ONCE VAGINAL
     Route: 067
     Dates: start: 20040903, end: 20040903

REACTIONS (3)
  - DYSPAREUNIA [None]
  - INJURY [None]
  - VAGINAL DISORDER [None]
